FAERS Safety Report 10791558 (Version 2)
Quarter: 2015Q1

REPORT INFORMATION
  Report Type: Report from Study
  Country: US (occurrence: US)
  Receive Date: 20150213
  Receipt Date: 20150213
  Transmission Date: 20150721
  Serious: Yes (Other)
  Sender: FDA-Public Use
  Company Number: US-AMGEN-USASL2014091199

PATIENT
  Age: 53 Year
  Sex: Female

DRUGS (2)
  1. ENBREL [Suspect]
     Active Substance: ETANERCEPT
     Indication: RHEUMATOID ARTHRITIS
  2. ENBREL [Suspect]
     Active Substance: ETANERCEPT
     Indication: ANKYLOSING SPONDYLITIS
     Dosage: 25 MG, 2 TIMES/WK
     Route: 058
     Dates: start: 201312

REACTIONS (7)
  - Spinal fusion surgery [Unknown]
  - Knee operation [Unknown]
  - Cervical spinal stenosis [Unknown]
  - Surgery [Unknown]
  - Pain [Unknown]
  - Hemiparesis [Unknown]
  - Accessory nerve disorder [Unknown]

NARRATIVE: CASE EVENT DATE: 20141120
